FAERS Safety Report 4375571-4 (Version None)
Quarter: 2004Q2

REPORT INFORMATION
  Report Type: 
  Country: None (occurrence: None)
  Receive Date: 20040607
  Receipt Date: 20040524
  Transmission Date: 20050107
  Serious: Yes (Other)
  Sender: FDA-Public Use
  Company Number: HQWYE132627MAY04

PATIENT
  Sex: Female

DRUGS (8)
  1. PREMPRO [Suspect]
     Indication: HORMONE REPLACEMENT THERAPY
  2. CYCRIN [Suspect]
     Indication: HORMONE REPLACEMENT THERAPY
  3. ESTROGENS (ESTROGENS, ) [Suspect]
     Indication: OESTROGEN REPLACEMENT THERAPY
  4. ESTROPIPATE [Suspect]
  5. OGEN [Suspect]
     Indication: OESTROGEN REPLACEMENT THERAPY
  6. ORTHO-EST [Suspect]
     Indication: OESTROGEN REPLACEMENT THERAPY
  7. PREMARIN [Suspect]
     Indication: OESTROGEN REPLACEMENT THERAPY
  8. PROVERA [Suspect]
     Indication: HORMONE REPLACEMENT THERAPY

REACTIONS (1)
  - BREAST CANCER [None]
